FAERS Safety Report 8951316 (Version 1)
Quarter: 2012Q4

REPORT INFORMATION
  Report Type: Spontaneous
  Country: US (occurrence: None)
  Receive Date: 20121109
  Receipt Date: 20121109
  Transmission Date: 20130627
  Serious: Yes (Death)
  Sender: FDA-Public Use
  Company Number: 2012033750

PATIENT
  Sex: Female
  Weight: 81.65 kg

DRUGS (26)
  1. DIPHENHYDRAMINE (DIPHENHYDRAMINE) [Concomitant]
  2. NAPROXEN (NAPROXEN) [Concomitant]
  3. DEXAMETHASONE (DEXAMETHASONE) [Concomitant]
  4. IBUPROFEN (IBUPROFEN) [Concomitant]
  5. ABILIFY (ARIPIRAZOLE) [Concomitant]
  6. CARIMUNE [Suspect]
     Indication: CHRONIC INFLAMMATORY DEMYELINATING POLYRADICULONEUROPATHY
     Route: 042
     Dates: start: 20121013, end: 20121013
  7. CARIMUNE [Suspect]
     Indication: CHRONIC INFLAMMATORY DEMYELINATING POLYRADICULONEUROPATHY
     Route: 042
     Dates: start: 20121011, end: 20121011
  8. CARIMUNE [Suspect]
     Indication: CHRONIC INFLAMMATORY DEMYELINATING POLYRADICULONEUROPATHY
     Route: 042
     Dates: start: 20120818, end: 20120818
  9. CARIMUNE [Suspect]
     Indication: CHRONIC INFLAMMATORY DEMYELINATING POLYRADICULONEUROPATHY
     Route: 042
     Dates: start: 20120816, end: 20120816
  10. CARIMUNE [Suspect]
     Indication: CHRONIC INFLAMMATORY DEMYELINATING POLYRADICULONEUROPATHY
     Route: 042
     Dates: start: 20120721, end: 20120721
  11. CARIMUNE [Suspect]
     Indication: CHRONIC INFLAMMATORY DEMYELINATING POLYRADICULONEUROPATHY
     Route: 042
     Dates: start: 20120705, end: 20120705
  12. CARIMUNE [Suspect]
     Indication: CHRONIC INFLAMMATORY DEMYELINATING POLYRADICULONEUROPATHY
     Route: 042
     Dates: start: 20120703, end: 20120703
  13. CARIMUNE [Suspect]
     Indication: CHRONIC INFLAMMATORY DEMYELINATING POLYRADICULONEUROPATHY
     Route: 042
     Dates: start: 20120607, end: 20120607
  14. CARIMUNE [Suspect]
     Indication: CHRONIC INFLAMMATORY DEMYELINATING POLYRADICULONEUROPATHY
     Route: 042
     Dates: start: 20120606, end: 20120606
  15. CARIMUNE [Suspect]
     Indication: CHRONIC INFLAMMATORY DEMYELINATING POLYRADICULONEUROPATHY
     Route: 042
     Dates: start: 20120510, end: 20120510
  16. CARIMUNE [Suspect]
     Indication: CHRONIC INFLAMMATORY DEMYELINATING POLYRADICULONEUROPATHY
     Route: 042
     Dates: start: 20120509, end: 20120509
  17. CARIMUNE [Suspect]
     Indication: CHRONIC INFLAMMATORY DEMYELINATING POLYRADICULONEUROPATHY
     Route: 042
     Dates: start: 20120412, end: 20120412
  18. CARIMUNE [Suspect]
     Indication: CHRONIC INFLAMMATORY DEMYELINATING POLYRADICULONEUROPATHY
     Route: 042
     Dates: start: 20120411, end: 20120411
  19. PRIVIGEN [Suspect]
  20. AMITRIPTYLINE (AMITRIPTYLINE) [Concomitant]
  21. CYMBALTA (DULOXETINE HYDROCHLORIDE) [Concomitant]
  22. GRALISE (GABAPENTIN) [Concomitant]
  23. KADIAN (MORPHINE SULFATE) [Concomitant]
  24. METHOTREXATE (METHOTREXATE) [Concomitant]
  25. OXYMORPHONE (OXYMORPHONE) [Concomitant]
  26. ZOFRAN (ONDANSETRON) [Concomitant]

REACTIONS (44)
  - Anxiety [None]
  - Fatigue [None]
  - Nausea [None]
  - Off label use [None]
  - Pain [None]
  - Malaise [None]
  - Vomiting [None]
  - Emotional disorder [None]
  - Eye disorder [None]
  - Erythema [None]
  - Dizziness [None]
  - Loss of consciousness [None]
  - Muscle spasms [None]
  - Sinus tachycardia [None]
  - Tachypnoea [None]
  - Wheezing [None]
  - Pallor [None]
  - Hyperhidrosis [None]
  - Peripheral coldness [None]
  - Capillary nail refill test abnormal [None]
  - Unresponsive to stimuli [None]
  - Convulsion [None]
  - Respiratory failure [None]
  - Cardio-respiratory arrest [None]
  - Pulse absent [None]
  - Platelet count increased [None]
  - Leukocytosis [None]
  - Fibrin D dimer increased [None]
  - Activated partial thromboplastin time prolonged [None]
  - Prothrombin time prolonged [None]
  - International normalised ratio increased [None]
  - Blood pH decreased [None]
  - Base excess decreased [None]
  - Acute myocardial infarction [None]
  - Pulmonary embolism [None]
  - Pulmonary infarction [None]
  - Pupil fixed [None]
  - Metabolic acidosis [None]
  - Deep vein thrombosis [None]
  - Head injury [None]
  - Hypoxia [None]
  - Flushing [None]
  - Sleep disorder [None]
  - Mood altered [None]
